FAERS Safety Report 9026923 (Version 3)
Quarter: 2013Q4

REPORT INFORMATION
  Report Type: Spontaneous
  Country: US (occurrence: US)
  Receive Date: 20130123
  Receipt Date: 20131011
  Transmission Date: 20140711
  Serious: Yes (Other)
  Sender: FDA-Public Use
  Company Number: US-PFIZER INC-2013024502

PATIENT
  Sex: Female

DRUGS (3)
  1. LYRICA [Suspect]
     Dosage: UNK
  2. BETHANECHOL [Interacting]
     Indication: MUSCLE TIGHTNESS
     Dosage: UNK
  3. ENTACAPONE [Suspect]
     Dosage: UNK

REACTIONS (5)
  - Movement disorder [Unknown]
  - Drug interaction [Unknown]
  - Urine flow decreased [Unknown]
  - Gastric disorder [Unknown]
  - Nausea [Unknown]
